FAERS Safety Report 19504456 (Version 1)
Quarter: 2021Q3

REPORT INFORMATION
  Report Type: Spontaneous
  Country: US (occurrence: US)
  Receive Date: 20210708
  Receipt Date: 20210708
  Transmission Date: 20211014
  Serious: Yes (Other)
  Sender: FDA-Public Use
  Company Number: US-SA-2021SA215432

PATIENT
  Age: 79 Year
  Sex: Male

DRUGS (1)
  1. LANTUS SOLOSTAR [Suspect]
     Active Substance: INSULIN GLARGINE
     Indication: DIABETES MELLITUS
     Dosage: 8 IU, BID
     Route: 065

REACTIONS (3)
  - Dementia [Not Recovered/Not Resolved]
  - Inappropriate schedule of product administration [Unknown]
  - Cognitive disorder [Not Recovered/Not Resolved]
